FAERS Safety Report 4816211-7 (Version None)
Quarter: 2005Q4

REPORT INFORMATION
  Report Type: 
  Country: None (occurrence: None)
  Receive Date: 20051026
  Receipt Date: 20050927
  Transmission Date: 20060501
  Serious: Yes (Hospitalization, Disabling)
  Sender: FDA-Public Use
  Company Number: PHBS2005AT09514

PATIENT
  Sex: Male

DRUGS (2)
  1. LIORESAL [Suspect]
     Route: 037
  2. LIORESAL [Suspect]
     Dosage: 25 MG, TID
     Route: 048

REACTIONS (15)
  - ADHESION [None]
  - ASTHENIA [None]
  - BRAIN STEM SYNDROME [None]
  - CONDITION AGGRAVATED [None]
  - CSF PROTEIN INCREASED [None]
  - CSF TEST ABNORMAL [None]
  - DYSTONIA [None]
  - GENERAL PHYSICAL HEALTH DETERIORATION [None]
  - HYPOTONIA [None]
  - MOBILITY DECREASED [None]
  - MOTOR DYSFUNCTION [None]
  - MYASTHENIC SYNDROME [None]
  - OEDEMA [None]
  - POST PROCEDURAL COMPLICATION [None]
  - SPINAL CORD OEDEMA [None]
